FAERS Safety Report 23449547 (Version 1)
Quarter: 2024Q1

REPORT INFORMATION
  Report Type: Spontaneous
  Country: BR (occurrence: BR)
  Receive Date: 20240129
  Receipt Date: 20240129
  Transmission Date: 20240410
  Serious: Yes (Other)
  Sender: FDA-Public Use
  Company Number: BR-BAYER-2024A013743

PATIENT
  Age: 63 Year
  Sex: Female

DRUGS (1)
  1. RIVAROXABAN [Suspect]
     Active Substance: RIVAROXABAN
     Indication: Arterial thrombosis
     Dosage: 2.5 MG, BID
     Route: 048

REACTIONS (7)
  - Cardiovascular disorder [Unknown]
  - Disability [Unknown]
  - Arterial thrombosis [Unknown]
  - Leg amputation [Not Recovered/Not Resolved]
  - Exercise tolerance decreased [Unknown]
  - Hypertension [Unknown]
  - Off label use [Unknown]
